FAERS Safety Report 10055236 (Version 1)
Quarter: 2014Q2

REPORT INFORMATION
  Report Type: Spontaneous
  Country: US (occurrence: US)
  Receive Date: 20140403
  Receipt Date: 20140403
  Transmission Date: 20141212
  Serious: Yes (Other)
  Sender: FDA-Public Use
  Company Number: US-PFIZER INC-2014087943

PATIENT
  Sex: 0

DRUGS (2)
  1. XALATAN [Suspect]
     Dosage: UNK
  2. LATANOPROST [Suspect]
     Dosage: UNK

REACTIONS (7)
  - Hypersensitivity [Unknown]
  - Dyspnoea [Unknown]
  - Swelling face [Unknown]
  - Lip swelling [Unknown]
  - Swollen tongue [Unknown]
  - Pharyngeal oedema [Unknown]
  - Loss of consciousness [Unknown]
